FAERS Safety Report 7394317-9 (Version None)
Quarter: 2011Q1

REPORT INFORMATION
  Report Type: 
  Country: None (occurrence: None)
  Receive Date: 20110325
  Receipt Date: 20110318
  Transmission Date: 20110831
  Serious: Yes (Other)
  Sender: FDA-Public Use
  Company Number: GB-ACCORD-008506

PATIENT
  Age: 47 Year
  Sex: Female

DRUGS (5)
  1. CLONAZEPAM [Suspect]
     Indication: PRODUCT USED FOR UNKNOWN INDICATION
     Dosage: 1.50 MG
  2. LEVETIRACETAM (LEVEITRACETAM) [Suspect]
     Indication: CONVULSION
     Dosage: 4000-00-MG-1.0DAY
  3. DIAZEPAM [Suspect]
     Indication: PRODUCT USED FOR UNKNOWN INDICATION
     Dosage: 4.00MG
  4. LACOSAMIDE [Suspect]
     Indication: PRODUCT USED FOR UNKNOWN INDICATION
     Dosage: 100.00-MG-1.0DAY
  5. OXCARBAZEPINE [Suspect]
     Indication: PRODUCT USED FOR UNKNOWN INDICATION
     Dosage: 1500.00MG

REACTIONS (6)
  - DRUG INTERACTION [None]
  - ANTICONVULSANT DRUG LEVEL DECREASED [None]
  - ATAXIA [None]
  - NEUROTOXICITY [None]
  - DIPLOPIA [None]
  - VERTIGO [None]
